FAERS Safety Report 7520409-7 (Version None)
Quarter: 2011Q2

REPORT INFORMATION
  Report Type: 
  Country: None (occurrence: None)
  Receive Date: 20110602
  Receipt Date: 20110520
  Transmission Date: 20111010
  Serious: Yes (Hospitalization, Other)
  Sender: FDA-Public Use
  Company Number: US-BAYER-2010-008919

PATIENT
  Age: 23 Year
  Sex: Female
  Weight: 109 kg

DRUGS (6)
  1. PREDNISONE [Concomitant]
     Dosage: 20 MG, UNK
     Dates: start: 20080121
  2. CEFTIN [Concomitant]
     Dosage: 500 MG, BID
     Route: 048
     Dates: start: 20071228, end: 20080106
  3. METFORMIN HCL [Concomitant]
     Dosage: 500 MG, BID
  4. ORTHO-NOVUM [Concomitant]
     Dosage: UNK UNK, QD
  5. CLONAZEPAM [Concomitant]
  6. YASMIN [Suspect]
     Indication: MENSTRUAL DISORDER
     Dosage: UNK UNK, QD
     Route: 048
     Dates: start: 20040101, end: 20080201

REACTIONS (6)
  - OEDEMA PERIPHERAL [None]
  - DEPRESSION [None]
  - INSOMNIA [None]
  - PAIN [None]
  - DEEP VEIN THROMBOSIS [None]
  - ANXIETY [None]
